FAERS Safety Report 15714329 (Version 1)
Quarter: 2018Q4

REPORT INFORMATION
  Report Type: Spontaneous
  Country: US (occurrence: US)
  Receive Date: 20181212
  Receipt Date: 20181212
  Transmission Date: 20190205
  Serious: No
  Sender: FDA-Public Use
  Company Number: US-SA-2018SA335591

PATIENT
  Age: 70 Year
  Sex: Female

DRUGS (1)
  1. PRALUENT [Suspect]
     Active Substance: ALIROCUMAB
     Dosage: 75 MG, 1X
     Route: 058
     Dates: start: 20181010, end: 20181010

REACTIONS (2)
  - Lip exfoliation [Recovered/Resolved]
  - Tongue exfoliation [Recovered/Resolved]

NARRATIVE: CASE EVENT DATE: 20181010
